FAERS Safety Report 9263609 (Version 2)
Quarter: 2013Q2

REPORT INFORMATION
  Report Type: Report from Study
  Country: US (occurrence: US)
  Receive Date: 20130430
  Receipt Date: 20130508
  Transmission Date: 20140414
  Serious: Yes (Other)
  Sender: FDA-Public Use
  Company Number: US-PFIZER INC-2013134737

PATIENT
  Age: 67 Year
  Sex: Female

DRUGS (8)
  1. CISPLATIN [Suspect]
     Indication: OVARIAN CANCER RECURRENT
     Dosage: UNK
     Route: 033
  2. GEMCITABINE HYDROCHLORIDE [Suspect]
     Indication: OVARIAN CANCER RECURRENT
     Dosage: UNK
  3. OXALIPLATIN [Suspect]
     Indication: OVARIAN CANCER RECURRENT
     Dosage: UNK
  4. CARBOPLATIN [Suspect]
     Indication: OVARIAN CANCER RECURRENT
     Dosage: INDUCTION THERAPY
  5. PACLITAXEL [Suspect]
     Indication: OVARIAN CANCER RECURRENT
     Dosage: UNK
  6. TOPOTECAN HYDROCHLORIDE [Suspect]
     Indication: OVARIAN CANCER RECURRENT
     Dosage: UNK
  7. BEVACIZUMAB [Suspect]
     Indication: OVARIAN CANCER RECURRENT
     Dosage: UNK
  8. DOXORUBICIN LIPOSOMAL [Suspect]
     Indication: OVARIAN CANCER RECURRENT
     Dosage: CUMULATIVE DOSE 460 MG/M2

REACTIONS (1)
  - Renal failure chronic [Recovering/Resolving]
